FAERS Safety Report 6133516-0 (Version None)
Quarter: 2009Q1

REPORT INFORMATION
  Report Type: 
  Country: None (occurrence: None)
  Receive Date: 20090325
  Receipt Date: 20090325
  Transmission Date: 20090719
  Serious: Yes (Hospitalization)
  Sender: FDA-Public Use
  Company Number: None

PATIENT
  Age: 62 Year
  Sex: Male
  Weight: 108.86 kg

DRUGS (2)
  1. NPH ILETIN II [Suspect]
     Indication: DIABETES MELLITUS
     Dosage: 30 UNITS AT BEDTIME SQ
     Route: 058
     Dates: start: 20080409, end: 20090105
  2. GLYBURIDE [Suspect]
     Dosage: 10 MG BID PO
     Route: 048
     Dates: start: 20020101, end: 20090105

REACTIONS (6)
  - BLOOD GLUCOSE DECREASED [None]
  - DIZZINESS [None]
  - FALL [None]
  - HYPOPHAGIA [None]
  - PERIORBITAL HAEMATOMA [None]
  - SKIN LACERATION [None]
